FAERS Safety Report 6085257-6 (Version None)
Quarter: 2009Q1

REPORT INFORMATION
  Report Type: 
  Country: None (occurrence: None)
  Receive Date: 20090218
  Receipt Date: 20090210
  Transmission Date: 20090719
  Serious: Yes (Death)
  Sender: FDA-Public Use
  Company Number: 2009SP002501

PATIENT
  Age: 72 Year
  Sex: Male
  Weight: 50 kg

DRUGS (12)
  1. TEMODAL [Suspect]
     Indication: GLIOBLASTOMA MULTIFORME
     Dosage: 75 MG/M2; QD; PO
     Route: 048
     Dates: start: 20081216, end: 20081230
  2. TEMODAL [Suspect]
     Indication: GLIOBLASTOMA MULTIFORME
     Dosage: 75 MG/M2; QD; PO
     Route: 048
     Dates: start: 20090106, end: 20090108
  3. SIGMART [Concomitant]
  4. SELOKEN [Concomitant]
  5. NORVASC [Concomitant]
  6. CARDENALIN [Concomitant]
  7. MEVALOTIN [Concomitant]
  8. FRANDOL S [Concomitant]
  9. EXCEGRAN [Concomitant]
  10. PHENOBARBITAL TAB [Concomitant]
  11. GASTER D [Concomitant]
  12. RINDERON [Concomitant]

REACTIONS (7)
  - CARDIAC FAILURE [None]
  - HYPERKALAEMIA [None]
  - INTERSTITIAL LUNG DISEASE [None]
  - MULTI-ORGAN FAILURE [None]
  - RENAL FAILURE [None]
  - RESPIRATORY FAILURE [None]
  - VIRAL INFECTION [None]
